FAERS Safety Report 22643210 (Version 1)
Quarter: 2023Q2

REPORT INFORMATION
  Report Type: Report from Study
  Country: US (occurrence: None)
  Receive Date: 20230627
  Receipt Date: 20230627
  Transmission Date: 20230722
  Serious: Yes (Hospitalization)
  Sender: FDA-Public Use
  Company Number: US-ROCHE-3312784

PATIENT
  Sex: Female

DRUGS (2)
  1. OBINUTUZUMAB [Suspect]
     Active Substance: OBINUTUZUMAB
     Indication: Non-Hodgkin^s lymphoma unspecified histology indolent
     Dosage: LAST DOSE OF OBINUTUZUMAB GIVEN 10/MAR/2023, 15/MAR/2023. PATIENT RECEIVE OBINUTUZUMAB INTRAVENOUSLY
     Route: 042
  2. IBRUTINIB [Suspect]
     Active Substance: IBRUTINIB
     Indication: Non-Hodgkin^s lymphoma unspecified histology indolent
     Dosage: LAST DOSE OF IBRUTINIB (DISPENSED 10/MAR/2023, 15/MAR/2023).  PATIENT RECEIVE IBRUTINIB ORALLY (PO)
     Route: 048

REACTIONS (2)
  - Abdominal pain [Recovered/Resolved]
  - Pancreatitis [Recovered/Resolved]

NARRATIVE: CASE EVENT DATE: 20230315
